FAERS Safety Report 9301784 (Version 1)
Quarter: 2013Q2

REPORT INFORMATION
  Report Type: Spontaneous
  Country: US (occurrence: US)
  Receive Date: 20130521
  Receipt Date: 20130521
  Transmission Date: 20140414
  Serious: No
  Sender: FDA-Public Use
  Company Number: US-TEVA-337973USA

PATIENT
  Sex: Female
  Weight: 68.1 kg

DRUGS (1)
  1. FENTORA [Suspect]
     Indication: BACK PAIN
     Route: 002

REACTIONS (3)
  - Back pain [Not Recovered/Not Resolved]
  - Disturbance in attention [Not Recovered/Not Resolved]
  - Off label use [Not Recovered/Not Resolved]
